FAERS Safety Report 12957760 (Version 2)
Quarter: 2016Q4

REPORT INFORMATION
  Report Type: Spontaneous
  Country: US (occurrence: US)
  Receive Date: 20161118
  Receipt Date: 20161215
  Transmission Date: 20170207
  Serious: Yes (Death, Life-Threatening, Hospitalization, Other)
  Sender: FDA-Public Use
  Company Number: US-009507513-1611USA008391

PATIENT
  Age: 52 Year
  Sex: Female
  Weight: 53.8 kg

DRUGS (2)
  1. KEYTRUDA [Suspect]
     Active Substance: PEMBROLIZUMAB
     Dosage: UNK
     Dates: end: 20161014
  2. KEYTRUDA [Suspect]
     Active Substance: PEMBROLIZUMAB
     Indication: TREATMENT FAILURE
     Dosage: 115 MG, EVERY 21 DAYS
     Route: 042
     Dates: start: 20160901, end: 20160922

REACTIONS (7)
  - Internal haemorrhage [Fatal]
  - Rectal haemorrhage [Fatal]
  - Product use issue [Unknown]
  - Ascites [Fatal]
  - Hypersensitivity [Fatal]
  - Rash [Fatal]
  - Skin exfoliation [Fatal]

NARRATIVE: CASE EVENT DATE: 2016
